FAERS Safety Report 6671041-9 (Version None)
Quarter: 2010Q2

REPORT INFORMATION
  Report Type: 
  Country: None (occurrence: None)
  Receive Date: 20100407
  Receipt Date: 20100324
  Transmission Date: 20101027
  Serious: Yes (Other)
  Sender: FDA-Public Use
  Company Number: US-WATSON-2010-04224

PATIENT
  Age: 38 Year
  Sex: Male
  Weight: 96 kg

DRUGS (4)
  1. NANDROLONE DECANOATE (WATSON LABORATORIES) [Suspect]
     Indication: DRUG ABUSE
     Dosage: UNK
  2. SUSTANON                           /00418401/ [Suspect]
     Indication: DRUG ABUSE
     Dosage: UNK
  3. PRIMOBOLAN                         /00044802/ [Suspect]
     Indication: DRUG ABUSE
     Dosage: UNK
  4. STANOZOLOL [Suspect]
     Indication: DRUG ABUSE
     Dosage: UNK

REACTIONS (1)
  - FOCAL SEGMENTAL GLOMERULOSCLEROSIS [None]
